FAERS Safety Report 17448879 (Version 1)
Quarter: 2020Q1

REPORT INFORMATION
  Report Type: Report from Study
  Country: CA (occurrence: CA)
  Receive Date: 20200224
  Receipt Date: 20200224
  Transmission Date: 20200409
  Serious: Yes (Hospitalization)
  Sender: FDA-Public Use
  Company Number: CA-ROCHE-2257921

PATIENT
  Age: 90 Year
  Sex: Female

DRUGS (16)
  1. MOMETASONE [Concomitant]
     Active Substance: MOMETASONE
  2. TYLENOL [Concomitant]
     Active Substance: ACETAMINOPHEN
     Indication: PREMEDICATION
     Route: 048
     Dates: start: 20180807
  3. RISEDRONATE [Concomitant]
     Active Substance: RISEDRONATE SODIUM
  4. ATIVAN [Concomitant]
     Active Substance: LORAZEPAM
  5. BENADRYL [Concomitant]
     Active Substance: DIPHENHYDRAMINE HYDROCHLORIDE
     Indication: PREMEDICATION
     Route: 042
     Dates: start: 20180807
  6. PANTOLOC [PANTOPRAZOLE] [Concomitant]
     Active Substance: PANTOPRAZOLE SODIUM
  7. ACETYLSALICYLIC ACID [Concomitant]
     Active Substance: ASPIRIN
  8. SYNTHROID [Concomitant]
     Active Substance: LEVOTHYROXINE SODIUM
  9. SOLU-MEDROL [Concomitant]
     Active Substance: METHYLPREDNISOLONE SODIUM SUCCINATE
     Indication: PREMEDICATION
     Route: 042
     Dates: start: 20180807
  10. SULFATRIM [Concomitant]
     Active Substance: SULFAMETHOXAZOLE\TRIMETHOPRIM
  11. ASA [Concomitant]
     Active Substance: ASPIRIN
  12. NORVASC [Concomitant]
     Active Substance: AMLODIPINE BESYLATE
  13. BETADERM [BETAMETHASONE VALERATE] [Concomitant]
  14. PREDNISONE. [Concomitant]
     Active Substance: PREDNISONE
  15. RITUXAN [Suspect]
     Active Substance: RITUXIMAB
     Indication: GRANULOMATOSIS WITH POLYANGIITIS
     Route: 042
     Dates: start: 20180807
  16. PROTOPIC [Concomitant]
     Active Substance: TACROLIMUS

REACTIONS (11)
  - Arthralgia [Not Recovered/Not Resolved]
  - Blood pressure systolic increased [Not Recovered/Not Resolved]
  - Oedema peripheral [Unknown]
  - Blood pressure diastolic decreased [Unknown]
  - Off label use [Unknown]
  - Intentional product misuse [Unknown]
  - Dyspnoea [Not Recovered/Not Resolved]
  - Infusion related reaction [Unknown]
  - Oxygen saturation decreased [Unknown]
  - Blood pressure diastolic abnormal [Unknown]
  - Respiratory distress [Unknown]

NARRATIVE: CASE EVENT DATE: 20180807
